FAERS Safety Report 16120013 (Version 1)
Quarter: 2019Q1

REPORT INFORMATION
  Report Type: Spontaneous
  Country: NZ (occurrence: NZ)
  Receive Date: 20190326
  Receipt Date: 20190326
  Transmission Date: 20190418
  Serious: Yes (Life-Threatening, Hospitalization, Other)
  Sender: FDA-Public Use
  Company Number: NZ-IMPAX LABORATORIES, LLC-2019-IPXL-00715

PATIENT
  Age: 10 Year
  Sex: Female
  Weight: 30 kg

DRUGS (11)
  1. ADRENACLICK [Suspect]
     Active Substance: EPINEPHRINE
     Indication: CARDIAC ARREST
     Dosage: 0.8 MILLIGRAM, SINGLE
     Route: 042
  2. ADRENACLICK [Suspect]
     Active Substance: EPINEPHRINE
     Dosage: 0.2 MILLIGRAM, SINGLE
     Route: 040
  3. ADRENACLICK [Suspect]
     Active Substance: EPINEPHRINE
     Dosage: UNK, AT 9 HOURS
     Route: 040
  4. ADRENACLICK [Suspect]
     Active Substance: EPINEPHRINE
     Dosage: 0.05 MICROGRAM/KILOGRAM, EVERY MIN
     Route: 041
  5. ADRENACLICK [Suspect]
     Active Substance: EPINEPHRINE
     Dosage: 0.2 MICROGRAM/KILOGRAM, EVERY MIN
     Route: 040
  6. MAGNESIUM [Concomitant]
     Active Substance: MAGNESIUM
     Indication: VENTRICULAR FIBRILLATION
     Dosage: UNK
     Route: 042
  7. AMIODARONE [Concomitant]
     Active Substance: AMIODARONE
     Indication: VENTRICULAR FIBRILLATION
     Dosage: UNK
     Route: 042
  8. ADRENACLICK [Suspect]
     Active Substance: EPINEPHRINE
     Dosage: 0.2 MICROGRAM/KILOGRAM, EVERY MIN
     Route: 041
  9. PROPOFOL. [Concomitant]
     Active Substance: PROPOFOL
     Indication: VENTRICULAR FIBRILLATION
     Dosage: UNK
     Route: 041
  10. ADRENACLICK [Suspect]
     Active Substance: EPINEPHRINE
     Dosage: 0.5 MICROGRAM/KILOGRAM, EVERY MIN
     Route: 040
  11. ATROPINE. [Concomitant]
     Active Substance: ATROPINE
     Indication: VENTRICULAR FIBRILLATION
     Dosage: UNK
     Route: 065

REACTIONS (4)
  - Ventricular tachycardia [Recovered/Resolved]
  - Drug ineffective for unapproved indication [Unknown]
  - Ventricular extrasystoles [Recovered/Resolved]
  - Cardiac arrest [Recovered/Resolved]
